FAERS Safety Report 5853991-6 (Version None)
Quarter: 2008Q3

REPORT INFORMATION
  Report Type: 
  Country: None (occurrence: None)
  Receive Date: 20080822
  Receipt Date: 20080814
  Transmission Date: 20090109
  Serious: Yes (Hospitalization)
  Sender: FDA-Public Use
  Company Number: US-ABBOTT-08P-163-0470541-00

PATIENT
  Sex: Male
  Weight: 86.26 kg

DRUGS (13)
  1. NIASPAN [Suspect]
     Indication: LOW DENSITY LIPOPROTEIN INCREASED
     Route: 048
     Dates: start: 20000101
  2. NIASPAN [Suspect]
     Indication: HIGH DENSITY LIPOPROTEIN DECREASED
     Route: 048
  3. ACETAMINOPHEN [Suspect]
     Indication: NASOPHARYNGITIS
     Dosage: OVER THE COUNTER FOR COLDS
     Route: 048
     Dates: start: 20031201, end: 20040101
  4. ACETAMINOPHEN [Suspect]
     Route: 048
     Dates: start: 20071201, end: 20080101
  5. ACETYLSALICYLIC ACID SRT [Concomitant]
     Indication: CARDIAC DISORDER
     Route: 048
  6. ESOMEPRAZOLE MAGNESIUM [Concomitant]
     Indication: PHARYNGEAL DISORDER
     Route: 048
  7. ESOMEPRAZOLE MAGNESIUM [Concomitant]
     Indication: FLATULENCE
  8. IRON [Concomitant]
     Indication: DRUG USE FOR UNKNOWN INDICATION
     Route: 048
  9. MOMETASONE FUROATE [Concomitant]
     Indication: HYPERSENSITIVITY
     Dosage: 1 SPRAY IN EACH NARE DAILY
     Route: 045
  10. RYTHMOL [Concomitant]
     Indication: CARDIAC DISORDER
     Route: 048
  11. TOPIRAMATE [Concomitant]
     Indication: BLOOD PRESSURE
     Route: 048
  12. FISH OIL [Concomitant]
     Indication: DRUG USE FOR UNKNOWN INDICATION
     Route: 048
  13. LEVOTHYROXINE SODIUM [Concomitant]
     Indication: THYROID DISORDER
     Route: 048

REACTIONS (3)
  - DRUG INTERACTION [None]
  - HAEMATOCHEZIA [None]
  - NASOPHARYNGITIS [None]
